FAERS Safety Report 23249921 (Version 2)
Quarter: 2023Q4

REPORT INFORMATION
  Report Type: Spontaneous
  Country: KR (occurrence: KR)
  Receive Date: 20231201
  Receipt Date: 20231207
  Transmission Date: 20240110
  Serious: No
  Sender: FDA-Public Use
  Company Number: KR-002147023-NVSC2023KR252023

PATIENT

DRUGS (1)
  1. RUXOLITINIB [Suspect]
     Active Substance: RUXOLITINIB
     Indication: Acute graft versus host disease
     Dosage: 20 MG
     Route: 065

REACTIONS (5)
  - Abdominal pain [Recovered/Resolved]
  - Cytomegalovirus infection [Unknown]
  - Diarrhoea [Unknown]
  - Platelet count decreased [Unknown]
  - White blood cell count decreased [Unknown]
